FAERS Safety Report 23862203 (Version 6)
Quarter: 2025Q2

REPORT INFORMATION
  Report Type: Report from Study
  Country: MX (occurrence: MX)
  Receive Date: 20240516
  Receipt Date: 20250522
  Transmission Date: 20250716
  Serious: Yes (Other)
  Sender: NOVARTIS
  Company Number: MX-002147023-NVSC2022MX213011

PATIENT
  Age: 41 Year
  Sex: Female
  Weight: 73 kg

DRUGS (9)
  1. FEMARA [Suspect]
     Active Substance: LETROZOLE
     Indication: Breast cancer stage III
     Dosage: 2.5 MG, QD (1 DOSAGE FORM) (PILL)
     Route: 048
     Dates: start: 20220625
  2. FEMARA [Suspect]
     Active Substance: LETROZOLE
     Indication: Breast cancer
     Dosage: 1 DOSAGE FORM, QD
     Route: 048
     Dates: start: 202206
  3. FEMARA [Suspect]
     Active Substance: LETROZOLE
     Dosage: 2.5 MG, QD (1 DOSAGE FORM) (PILL)
     Route: 048
     Dates: start: 202207
  4. FEMARA [Suspect]
     Active Substance: LETROZOLE
     Route: 065
  5. Lorelin [Concomitant]
     Indication: Contraception
     Dosage: 1 DOSAGE FORM, Q3MO (11.25)
     Route: 030
     Dates: start: 202404
  6. Lorelin [Concomitant]
     Indication: Breast cancer stage III
  7. LEUPROLIDE ACETATE [Concomitant]
     Active Substance: LEUPROLIDE ACETATE
     Indication: Contraception
     Route: 058
     Dates: start: 202309
  8. LEUPROLIDE ACETATE [Concomitant]
     Active Substance: LEUPROLIDE ACETATE
     Indication: Breast cancer stage III
     Dosage: 1 DOSAGE FORM (3.75 MG), QMO
     Route: 065
  9. PANTOPRAZOLE [Concomitant]
     Active Substance: PANTOPRAZOLE
     Indication: Product used for unknown indication
     Route: 065

REACTIONS (39)
  - Neuropathy peripheral [Not Recovered/Not Resolved]
  - Hypoaesthesia [Not Recovered/Not Resolved]
  - Paraesthesia [Not Recovered/Not Resolved]
  - Leukopenia [Recovering/Resolving]
  - Mood swings [Not Recovered/Not Resolved]
  - Eating disorder [Not Recovered/Not Resolved]
  - Stress [Unknown]
  - Anxiety [Unknown]
  - Constipation [Not Recovered/Not Resolved]
  - Joint swelling [Unknown]
  - Fluid retention [Recovering/Resolving]
  - Swelling face [Not Recovered/Not Resolved]
  - Gastritis [Recovering/Resolving]
  - Abdominal distension [Unknown]
  - Abdominal rigidity [Unknown]
  - Abdominal discomfort [Not Recovered/Not Resolved]
  - Feeling abnormal [Not Recovered/Not Resolved]
  - Gastrointestinal disorder [Unknown]
  - Discomfort [Not Recovered/Not Resolved]
  - Wound [Unknown]
  - Memory impairment [Recovering/Resolving]
  - Gastrooesophageal reflux disease [Unknown]
  - Bradyphrenia [Unknown]
  - Disturbance in attention [Unknown]
  - Blood pressure decreased [Unknown]
  - Adverse drug reaction [Unknown]
  - Inflammation [Recovering/Resolving]
  - Abdominal pain upper [Recovering/Resolving]
  - Initial insomnia [Recovering/Resolving]
  - Peripheral swelling [Not Recovered/Not Resolved]
  - Dry skin [Not Recovered/Not Resolved]
  - Hot flush [Not Recovered/Not Resolved]
  - Dyspepsia [Not Recovered/Not Resolved]
  - Tendonitis [Unknown]
  - Laboratory test abnormal [Not Recovered/Not Resolved]
  - Blood cholesterol increased [Not Recovered/Not Resolved]
  - Weight increased [Not Recovered/Not Resolved]
  - Fall [Unknown]
  - Arthralgia [Unknown]

NARRATIVE: CASE EVENT DATE: 20220701
